FAERS Safety Report 16270586 (Version 1)
Quarter: 2019Q2

REPORT INFORMATION
  Report Type: Spontaneous
  Country: RU (occurrence: RU)
  Receive Date: 20190503
  Receipt Date: 20190503
  Transmission Date: 20190711
  Serious: Yes (Life-Threatening)
  Sender: FDA-Public Use
  Company Number: RU-B. BRAUN MEDICAL INC.-2066590

PATIENT
  Age: 33 Year
  Sex: Female
  Weight: 72 kg

DRUGS (2)
  1. 0.9% SODIUM CHLORIDE INJECTION USP 0264-1800-31 0264-1800-32 (NDA 0174 [Suspect]
     Active Substance: SODIUM CHLORIDE
     Indication: FLUID REPLACEMENT
     Route: 042
     Dates: start: 20190326, end: 20190326
  2. LIDOCAINE. [Concomitant]
     Active Substance: LIDOCAINE
     Route: 050
     Dates: start: 20190326, end: 20190326

REACTIONS (5)
  - Cardiac arrest [None]
  - Asthenia [None]
  - Apnoea [None]
  - Loss of consciousness [None]
  - Sinus bradycardia [None]
